FAERS Safety Report 10186923 (Version 2)
Quarter: 2014Q2

REPORT INFORMATION
  Report Type: Report from Study
  Country: US (occurrence: US)
  Receive Date: 20140522
  Receipt Date: 20140606
  Transmission Date: 20141212
  Serious: Yes (Death)
  Sender: FDA-Public Use
  Company Number: US-BIOGENIDEC-2014BI043053

PATIENT
  Age: 70 Year
  Sex: Male

DRUGS (6)
  1. TYSABRI [Suspect]
     Indication: MULTIPLE SCLEROSIS
     Route: 042
     Dates: start: 20090828, end: 20120110
  2. OMEPRAZOLE [Concomitant]
  3. CARVEDILOL [Concomitant]
  4. VERITY (NOS) [Concomitant]
  5. VANCOMYCIN [Concomitant]
  6. MEROPENEM [Concomitant]

REACTIONS (1)
  - Cardio-respiratory arrest [Fatal]
